FAERS Safety Report 9001927 (Version 4)
Quarter: 2013Q2

REPORT INFORMATION
  Report Type: Report from Study
  Country: JP (occurrence: JP)
  Receive Date: 20130107
  Receipt Date: 20130619
  Transmission Date: 20140414
  Serious: Yes (Hospitalization)
  Sender: FDA-Public Use
  Company Number: JP-PFIZER INC-2012296531

PATIENT
  Age: 56 Year
  Sex: Male
  Weight: 81 kg

DRUGS (23)
  1. IRINOTECAN HCL [Suspect]
     Indication: COLORECTAL CANCER METASTATIC
     Dosage: UNK
     Route: 042
     Dates: start: 20120706
  2. FLUOROURACIL [Suspect]
     Indication: COLORECTAL CANCER METASTATIC
     Dosage: UNK
     Route: 042
     Dates: start: 20120706
  3. FOLINIC ACID [Suspect]
     Indication: COLORECTAL CANCER METASTATIC
     Dosage: UNK
     Route: 042
     Dates: start: 20120706
  4. BLINDED THERAPY [Suspect]
     Indication: COLORECTAL CANCER METASTATIC
     Dosage: UNK
     Route: 042
     Dates: start: 20120706, end: 20121029
  5. OXYCONTIN [Concomitant]
     Indication: CANCER PAIN
     Dosage: UNK
     Dates: start: 20120703
  6. OXINORM (OXYCODONE HYDROCHLORIDE) [Concomitant]
     Indication: CANCER PAIN
     Dosage: UNK
     Dates: start: 20120703
  7. AMLODIN [Concomitant]
     Indication: HYPERTENSION
     Dosage: UNK
     Dates: start: 20120706
  8. LOXONIN [Concomitant]
     Indication: CANCER PAIN
     Dosage: UNK
     Dates: start: 20120523
  9. TAKEPRON [Concomitant]
     Indication: PROPHYLAXIS AGAINST GASTROINTESTINAL ULCER
     Dosage: UNK
     Dates: start: 20120512
  10. MAGMITT [Concomitant]
     Indication: CONSTIPATION PROPHYLAXIS
     Dosage: UNK
     Dates: start: 20090804
  11. SENNARIDE [Concomitant]
     Indication: CONSTIPATION
     Dosage: UNK
     Dates: start: 20110518
  12. PRIMPERAN [Concomitant]
     Indication: NAUSEA
     Dosage: UNK
     Dates: start: 20120708
  13. MEDET [Concomitant]
     Indication: DIABETES MELLITUS
     Dosage: UNK
  14. AMARYL [Concomitant]
     Indication: DIABETES MELLITUS
     Dosage: UNK
  15. SITAGLIPTIN PHOSPHATE [Concomitant]
     Indication: DIABETES MELLITUS
     Dosage: UNK
  16. FERROMIA [Concomitant]
     Indication: ANAEMIA
     Dosage: UNK
     Dates: start: 20121109
  17. ASTOMIN [Concomitant]
     Indication: PRODUCTIVE COUGH
     Dosage: UNK
     Dates: start: 20121109, end: 20121113
  18. HOKUNALIN [Concomitant]
     Indication: PRODUCTIVE COUGH
     Dosage: TAPE
     Dates: start: 20121109, end: 20121113
  19. HUSTAZOL [Concomitant]
     Indication: PRODUCTIVE COUGH
     Dosage: UNK
     Dates: start: 20121112
  20. BAKUMONDOTO [Concomitant]
     Indication: PRODUCTIVE COUGH
     Dosage: UNK
     Dates: start: 20121109, end: 20121113
  21. FENTAS [Concomitant]
     Indication: CANCER PAIN
     Dosage: TAPE
     Dates: start: 20121116
  22. HIRUDOID [Concomitant]
     Indication: DRY SKIN
     Dosage: UNK
     Dates: start: 20121128
  23. VOLTAREN [Concomitant]
     Indication: MYALGIA
     Dosage: EMUGEL
     Dates: start: 20121128

REACTIONS (2)
  - Interstitial lung disease [Recovered/Resolved]
  - Intestinal obstruction [Recovered/Resolved]
